FAERS Safety Report 7929558-2 (Version None)
Quarter: 2011Q4

REPORT INFORMATION
  Report Type: 
  Country: None (occurrence: None)
  Receive Date: 20111121
  Receipt Date: 20111115
  Transmission Date: 20120403
  Serious: Yes (Hospitalization, Other)
  Sender: FDA-Public Use
  Company Number: US-JNJFOC-20110806514

PATIENT
  Sex: Female

DRUGS (6)
  1. LEVAQUIN [Suspect]
     Indication: INFECTION
     Route: 048
     Dates: start: 20031101, end: 20061001
  2. LIPITOR [Concomitant]
  3. HYDROCODONE BITARTRATE [Concomitant]
  4. METHYLPREDNISOLONE [Suspect]
     Indication: PRODUCT USED FOR UNKNOWN INDICATION
  5. SKELAXIN [Concomitant]
  6. LISINOPRIL [Concomitant]

REACTIONS (4)
  - ROTATOR CUFF SYNDROME [None]
  - CARPAL TUNNEL SYNDROME [None]
  - JOINT INJURY [None]
  - CUBITAL TUNNEL SYNDROME [None]
